FAERS Safety Report 16416251 (Version 1)
Quarter: 2019Q2

REPORT INFORMATION
  Report Type: Spontaneous
  Country: CN (occurrence: CN)
  Receive Date: 20190611
  Receipt Date: 20190611
  Transmission Date: 20190711
  Serious: Yes (Other)
  Sender: FDA-Public Use
  Company Number: CN-PROVELL PHARMACEUTICALS-2068084

PATIENT
  Age: 56 Year
  Sex: Female

DRUGS (4)
  1. EUTHYROX [Suspect]
     Active Substance: LEVOTHYROXINE SODIUM
     Route: 048
     Dates: start: 201902
  2. EUTHYROX [Suspect]
     Active Substance: LEVOTHYROXINE SODIUM
     Route: 048
     Dates: start: 201904, end: 201905
  3. EUTHYROX [Suspect]
     Active Substance: LEVOTHYROXINE SODIUM
     Route: 048
     Dates: end: 20190526
  4. EUTHYROX [Suspect]
     Active Substance: LEVOTHYROXINE SODIUM
     Route: 048
     Dates: end: 20190204

REACTIONS (6)
  - Asthenia [None]
  - Gastrointestinal surgery [None]
  - Hyperhidrosis [None]
  - Intentional product use issue [None]
  - Headache [None]
  - Intentional dose omission [None]

NARRATIVE: CASE EVENT DATE: 201902
